FAERS Safety Report 8799051 (Version 1)
Quarter: 2012Q4

REPORT INFORMATION
  Report Type: Spontaneous
  Country: US (occurrence: None)
  Receive Date: 20120913
  Receipt Date: 20120913
  Transmission Date: 20130627
  Serious: Yes (Other)
  Sender: FDA-Public Use
  Company Number: A0992573A

PATIENT
  Sex: Male

DRUGS (3)
  1. CALCIUM CARBONATE (FORMULATION UNKNOWN) (CALCIUM CARBONATE) [Suspect]
     Indication: PRODUCT USED FOR UNKNOWN INDICATION
  2. BISMUTH SUBSALICYLATE [Suspect]
  3. PSYLLIUM HUSK [Suspect]

REACTIONS (1)
  - Intentional drug misuse [None]
